FAERS Safety Report 7106951-1 (Version None)
Quarter: 2010Q4

REPORT INFORMATION
  Report Type: 
  Country: None (occurrence: None)
  Receive Date: 20101116
  Receipt Date: 20100831
  Transmission Date: 20110411
  Serious: No
  Sender: FDA-Public Use
  Company Number: US-ABBOTT-10P-163-0668828-00

PATIENT
  Sex: Male
  Weight: 93.07 kg

DRUGS (3)
  1. SIMCOR [Suspect]
     Indication: BLOOD CHOLESTEROL INCREASED
     Dosage: 500/20
     Dates: end: 20100601
  2. BYSTOLIC [Concomitant]
     Indication: PRODUCT USED FOR UNKNOWN INDICATION
  3. AZOR [Concomitant]
     Indication: BLOOD PRESSURE
     Dosage: 5/40

REACTIONS (2)
  - MUSCULAR WEAKNESS [None]
  - MYALGIA [None]
